FAERS Safety Report 11077914 (Version 1)
Quarter: 2015Q2

REPORT INFORMATION
  Report Type: Spontaneous
  Country: US (occurrence: None)
  Receive Date: 20150429
  Receipt Date: 20150429
  Transmission Date: 20150821
  Serious: Yes (Other)
  Sender: FDA-Public Use
  Company Number: None

PATIENT
  Age: 79 Year
  Sex: Female
  Weight: 108.41 kg

DRUGS (13)
  1. ATENOLOL. [Concomitant]
     Active Substance: ATENOLOL
  2. TYLENOL [Concomitant]
     Active Substance: ACETAMINOPHEN
  3. POTASSIUM CHLORIDE. [Concomitant]
     Active Substance: POTASSIUM CHLORIDE
  4. VITAMINS NOS [Concomitant]
     Active Substance: VITAMINS
  5. TRAMADOL [Concomitant]
     Active Substance: TRAMADOL
  6. ASPIRIN. [Concomitant]
     Active Substance: ASPIRIN
  7. FUROSEMIDE. [Concomitant]
     Active Substance: FUROSEMIDE
  8. OMEPRAZOLE. [Concomitant]
     Active Substance: OMEPRAZOLE
  9. ELIQUIS [Suspect]
     Active Substance: APIXABAN
     Indication: ATRIAL FIBRILLATION
     Dosage: 1 PILL (5MG)
     Route: 048
     Dates: start: 20150313, end: 20150417
  10. PACEMAKER [Concomitant]
  11. FLECAINIDE [Concomitant]
     Active Substance: FLECAINIDE
  12. FISH OIL [Concomitant]
     Active Substance: FISH OIL
  13. AMLODIPINE [Concomitant]
     Active Substance: AMLODIPINE BESYLATE

REACTIONS (8)
  - Pallor [None]
  - Haemoptysis [None]
  - Cardiac failure congestive [None]
  - Faeces discoloured [None]
  - Dyspnoea [None]
  - Blood count abnormal [None]
  - Fatigue [None]
  - Asthenia [None]

NARRATIVE: CASE EVENT DATE: 20150313
